FAERS Safety Report 21022383 (Version 1)
Quarter: 2022Q3

REPORT INFORMATION
  Report Type: Spontaneous
  Country: CH (occurrence: CH)
  Receive Date: 20220629
  Receipt Date: 20220629
  Transmission Date: 20221027
  Serious: Yes (Hospitalization, Other)
  Sender: FDA-Public Use
  Company Number: None

PATIENT
  Age: 65 Year
  Sex: Female
  Weight: 77 kg

DRUGS (3)
  1. TEGRETOL [Suspect]
     Active Substance: CARBAMAZEPINE
     Indication: Trigeminal neuralgia
     Dosage: UNK UNK, PRN (DOSE RANGED FROM 200 MG 2 TIMES DAILY TO 600 MG 2 TIMES DAILY)
     Route: 048
     Dates: start: 201111
  2. CALCIUM\CHOLECALCIFEROL [Concomitant]
     Active Substance: CALCIUM\CHOLECALCIFEROL
     Indication: Blood calcium decreased
     Dosage: 1000 MG/800 I.E.
     Route: 048
     Dates: start: 2007
  3. SODIUM CHONDROITIN SULFATE [Concomitant]
     Active Substance: SODIUM CHONDROITIN SULFATE
     Indication: Osteoarthritis
     Dosage: 800 MG
     Route: 048
     Dates: start: 2010

REACTIONS (2)
  - Stress fracture [Recovered/Resolved]
  - Osteonecrosis [Recovered/Resolved]

NARRATIVE: CASE EVENT DATE: 20210903
